FAERS Safety Report 9791703 (Version 1)
Quarter: 2014Q1

REPORT INFORMATION
  Report Type: Spontaneous
  Country: US (occurrence: US)
  Receive Date: 20140102
  Receipt Date: 20140102
  Transmission Date: 20141002
  Serious: No
  Sender: FDA-Public Use
  Company Number: US-009507513-1312USA010909

PATIENT
  Age: 82 Year
  Sex: Male

DRUGS (2)
  1. NASONEX [Suspect]
     Indication: RHINORRHOEA
     Dosage: 2 SPRAYS IN EACH NOSTRIL/NIGHTLY
     Route: 045
     Dates: start: 201311
  2. NASONEX [Suspect]
     Indication: INSOMNIA

REACTIONS (2)
  - Nasal congestion [Not Recovered/Not Resolved]
  - Drug ineffective [Not Recovered/Not Resolved]
